FAERS Safety Report 6617554-7 (Version None)
Quarter: 2010Q1

REPORT INFORMATION
  Report Type: 
  Country: None (occurrence: None)
  Receive Date: 20100302
  Receipt Date: 20100218
  Transmission Date: 20100710
  Serious: Yes (Hospitalization)
  Sender: FDA-Public Use
  Company Number: 230985J10USA

PATIENT
  Age: 44 Year
  Sex: Male
  Weight: 91 kg

DRUGS (3)
  1. REBIF [Suspect]
     Indication: MULTIPLE SCLEROSIS
     Dosage: 44 MCG, 3 IN 1 WEEKS, SUBCUTANEOUS
     Route: 058
     Dates: start: 20060109
  2. ATIVAN [Concomitant]
  3. LEXAPRO [Concomitant]

REACTIONS (4)
  - BLADDER DYSFUNCTION [None]
  - DEEP VEIN THROMBOSIS [None]
  - GRAND MAL CONVULSION [None]
  - TREMOR [None]
